FAERS Safety Report 8217737-9 (Version None)
Quarter: 2012Q1

REPORT INFORMATION
  Report Type: 
  Country: None (occurrence: None)
  Receive Date: 20120319
  Receipt Date: 20120307
  Transmission Date: 20120608
  Serious: Yes (Hospitalization)
  Sender: FDA-Public Use
  Company Number: AU-JNJFOC-20111009142

PATIENT
  Sex: Male
  Weight: 45.8 kg

DRUGS (8)
  1. ACETAMINOPHEN [Concomitant]
     Indication: PAIN
     Route: 065
     Dates: start: 20080225, end: 20111130
  2. ABIRATERONE ACETATE [Suspect]
     Route: 048
  3. ABIRATERONE ACETATE [Suspect]
     Indication: PROSTATE CANCER METASTATIC
     Route: 048
     Dates: start: 20111005
  4. PREDNISONE [Suspect]
     Indication: PROSTATE CANCER METASTATIC
     Route: 048
     Dates: start: 20111005
  5. LACTULOSE [Concomitant]
     Indication: CONSTIPATION
     Route: 065
     Dates: end: 20111101
  6. ZOLADEX [Concomitant]
     Indication: HORMONE THERAPY
     Route: 065
     Dates: start: 20080225
  7. RED BLOOD CELLS [Concomitant]
     Indication: ANAEMIA
     Route: 065
     Dates: start: 20111013, end: 20111014
  8. MAXOLON [Concomitant]
     Indication: NAUSEA
     Route: 065
     Dates: start: 20111102, end: 20111101

REACTIONS (3)
  - ANAEMIA [None]
  - VOMITING [None]
  - FATIGUE [None]
